FAERS Safety Report 21034734 (Version 5)
Quarter: 2022Q4

REPORT INFORMATION
  Report Type: Report from Study
  Country: CA (occurrence: CA)
  Receive Date: 20220701
  Receipt Date: 20221004
  Transmission Date: 20230113
  Serious: Yes (Hospitalization, Other)
  Sender: FDA-Public Use
  Company Number: CA-JNJFOC-20220618059

PATIENT
  Age: 63 Year
  Sex: Female

DRUGS (3)
  1. SIMPONI [Suspect]
     Active Substance: GOLIMUMAB
     Indication: Rheumatoid arthritis
     Route: 058
  2. SIMPONI [Suspect]
     Active Substance: GOLIMUMAB
     Route: 058
     Dates: start: 20220623
  3. SIMPONI [Suspect]
     Active Substance: GOLIMUMAB
     Dosage: LAST APPLICATION ON 23/JUN/2022
     Route: 058

REACTIONS (5)
  - Post procedural infection [Unknown]
  - Renal cancer [Not Recovered/Not Resolved]
  - Renal impairment [Unknown]
  - Impaired healing [Not Recovered/Not Resolved]
  - Off label use [Unknown]
